FAERS Safety Report 25314201 (Version 1)
Quarter: 2025Q2

REPORT INFORMATION
  Report Type: Spontaneous
  Country: US (occurrence: US)
  Receive Date: 20250514
  Receipt Date: 20250514
  Transmission Date: 20250716
  Serious: No
  Sender: Kenvue
  Company Number: US-KENVUE-20250501272

PATIENT
  Age: 71 Year
  Sex: Female

DRUGS (2)
  1. MENS ROGAINE EXTRA STRENGTH [Suspect]
     Active Substance: MINOXIDIL
     Indication: Alopecia
     Dosage: EVERY NIGHT BEFORE I GO TO BED,  JUST HAVE TO GENTLY PRY MY FINGERS APART AND THEN RUB IT INTO MY SC
     Route: 061
     Dates: start: 20250101, end: 2025
  2. Viviscal Thickening Shampoo [Concomitant]
     Indication: Product used for unknown indication
     Route: 061

REACTIONS (4)
  - Off label use [Unknown]
  - Contraindicated product administered [Unknown]
  - Product container issue [Unknown]
  - Poor quality product administered [Unknown]

NARRATIVE: CASE EVENT DATE: 20250101
